FAERS Safety Report 18277414 (Version 2)
Quarter: 2022Q2

REPORT INFORMATION
  Report Type: Report from Study
  Country: PH (occurrence: PH)
  Receive Date: 20200917
  Receipt Date: 20220622
  Transmission Date: 20220721
  Serious: Yes (Hospitalization)
  Sender: FDA-Public Use
  Company Number: PH-NOVARTISPH-NVSC2020PH252386

PATIENT
  Sex: Female

DRUGS (2)
  1. RIBOCICLIB [Suspect]
     Active Substance: RIBOCICLIB
     Indication: Product used for unknown indication
     Dosage: UNK
     Route: 065
  2. FEMARA [Suspect]
     Active Substance: LETROZOLE
     Indication: Product used for unknown indication
     Dosage: UNK
     Route: 065

REACTIONS (8)
  - Immunodeficiency [Unknown]
  - Renal injury [Unknown]
  - Sepsis [Unknown]
  - Pneumonia [Unknown]
  - Haemoglobin decreased [Unknown]
  - Stomatitis [Unknown]
  - Dysgeusia [Unknown]
  - Constipation [Unknown]
